FAERS Safety Report 5894868-X (Version None)
Quarter: 2008Q3

REPORT INFORMATION
  Report Type: 
  Country: None (occurrence: None)
  Receive Date: 20080924
  Receipt Date: 20080711
  Transmission Date: 20090109
  Serious: No
  Sender: FDA-Public Use
  Company Number: US-ASTRAZENECA-2008UW13939

PATIENT
  Age: 18 Year
  Sex: Male

DRUGS (3)
  1. SEROQUEL [Suspect]
     Dosage: FIRST DOSE
     Route: 048
     Dates: start: 20080701
  2. SEROQUEL [Suspect]
     Dosage: SECOND DOSE IN ERROR
     Route: 048
     Dates: start: 20080701
  3. TOPAMAX [Suspect]
     Dosage: ONE DOSE IN ERROR

REACTIONS (4)
  - AGITATION [None]
  - DRUG ADMINISTRATION ERROR [None]
  - MUSCLE TWITCHING [None]
  - SEDATION [None]
